FAERS Safety Report 11911062 (Version 1)
Quarter: 2016Q1

REPORT INFORMATION
  Report Type: Spontaneous
  Country: MX (occurrence: MX)
  Receive Date: 20160112
  Receipt Date: 20160112
  Transmission Date: 20160526
  Serious: Yes (Life-Threatening, Other)
  Sender: FDA-Public Use
  Company Number: MX-PFIZER INC-2015475497

PATIENT
  Age: 48 Year
  Sex: Male
  Weight: 75 kg

DRUGS (2)
  1. CELEBREX [Suspect]
     Active Substance: CELECOXIB
     Indication: BACK PAIN
     Dosage: 200 MG, 2X/DAY, BY 2-3 DAYS
     Route: 048
     Dates: start: 201512, end: 201512
  2. CELEBREX [Suspect]
     Active Substance: CELECOXIB
     Dosage: 200 MG, 1X/DAY BY 2-4 DAYS
     Route: 048
     Dates: start: 201512

REACTIONS (8)
  - Oedema peripheral [Recovered/Resolved]
  - Face oedema [Recovered/Resolved]
  - Dysphagia [Recovered/Resolved]
  - Pain in extremity [Recovered/Resolved]
  - Groin pain [Recovered/Resolved]
  - Neck pain [Recovered/Resolved]
  - Eyelid oedema [Recovered/Resolved]
  - Musculoskeletal pain [Recovered/Resolved]

NARRATIVE: CASE EVENT DATE: 201512
